FAERS Safety Report 6192348-8 (Version None)
Quarter: 2009Q2

REPORT INFORMATION
  Report Type: 
  Country: None (occurrence: None)
  Receive Date: 20090518
  Receipt Date: 20090508
  Transmission Date: 20091009
  Serious: Yes (Hospitalization)
  Sender: FDA-Public Use
  Company Number: CA-JNJFOC-20090501496

PATIENT
  Sex: Female

DRUGS (8)
  1. REMICADE [Suspect]
     Route: 042
  2. REMICADE [Suspect]
     Route: 042
  3. REMICADE [Suspect]
     Indication: PSORIASIS
     Route: 042
  4. CARBOPLATIN [Suspect]
     Indication: MEDICATION ERROR
  5. CRESTOR NOS [Concomitant]
     Route: 048
  6. VENLAFAXINE HCL [Concomitant]
     Route: 048
  7. CALCIUM AND VITAMIN D [Concomitant]
     Route: 048
  8. ISONIAZID [Concomitant]
     Route: 048

REACTIONS (5)
  - CHEST PAIN [None]
  - DYSPEPSIA [None]
  - FATIGUE [None]
  - NAUSEA [None]
  - WRONG DRUG ADMINISTERED [None]
